FAERS Safety Report 5078304-1 (Version None)
Quarter: 2006Q3

REPORT INFORMATION
  Report Type: 
  Country: None (occurrence: None)
  Receive Date: 20060811
  Receipt Date: 20050922
  Transmission Date: 20061208
  Serious: Yes (Other)
  Sender: FDA-Public Use
  Company Number: GB-MERCK-0509GBR00161

PATIENT
  Age: 42 Year
  Sex: Female
  Weight: 110 kg

DRUGS (5)
  1. ALDOMET [Suspect]
     Indication: HYPERTENSION
     Route: 048
     Dates: start: 20050919, end: 20050101
  2. ALDOMET [Suspect]
     Route: 048
     Dates: start: 20050901
  3. BENDROFLUMETHIAZIDE [Concomitant]
     Route: 065
     Dates: end: 20050919
  4. ATENOLOL [Concomitant]
     Route: 065
     Dates: end: 20050919
  5. ATENOLOL [Concomitant]
     Route: 065
     Dates: start: 20050920, end: 20050926

REACTIONS (3)
  - ABORTION SPONTANEOUS [None]
  - DRUG EXPOSURE DURING PREGNANCY [None]
  - SOMNOLENCE [None]
